FAERS Safety Report 5457480-2 (Version None)
Quarter: 2007Q3

REPORT INFORMATION
  Report Type: 
  Country: None (occurrence: None)
  Receive Date: 20070918
  Receipt Date: 20070228
  Transmission Date: 20080115
  Serious: Yes (Other)
  Sender: FDA-Public Use
  Company Number: US-ASTRAZENECA-2007UW04107

PATIENT
  Age: 556 Month
  Sex: Female
  Weight: 77.3 kg

DRUGS (3)
  1. SEROQUEL [Suspect]
     Indication: ANXIETY
     Dosage: 25-100 MG
     Dates: start: 20030701, end: 20060201
  2. SEROQUEL [Suspect]
     Indication: DEPRESSION
     Dosage: 25-100 MG
     Dates: start: 20030701, end: 20060201
  3. SEROQUEL [Suspect]
     Indication: INSOMNIA
     Dosage: 25-100 MG
     Dates: start: 20030701, end: 20060201

REACTIONS (3)
  - BLOOD TRIGLYCERIDES INCREASED [None]
  - DIABETES MELLITUS [None]
  - PANCREATITIS [None]
